APPROVED DRUG PRODUCT: HALOPERIDOL
Active Ingredient: HALOPERIDOL
Strength: 20MG
Dosage Form/Route: TABLET;ORAL
Application: A072353 | Product #001
Applicant: WATSON LABORATORIES INC
Approved: Aug 27, 1991 | RLD: No | RS: No | Type: DISCN